FAERS Safety Report 7429877-2 (Version None)
Quarter: 2011Q2

REPORT INFORMATION
  Report Type: 
  Country: None (occurrence: None)
  Receive Date: 20110421
  Receipt Date: 20110412
  Transmission Date: 20111010
  Serious: Yes (Other)
  Sender: FDA-Public Use
  Company Number: RO-ASTRAZENECA-2011SE21267

PATIENT
  Age: 22621 Day
  Sex: Female
  Weight: 87 kg

DRUGS (6)
  1. BETALOK [Concomitant]
     Indication: MYOCARDIAL ISCHAEMIA
     Route: 048
     Dates: start: 20010101
  2. TERTENSIF [Concomitant]
     Indication: HYPERTENSION
     Route: 048
     Dates: start: 19990101
  3. CRESTOR [Suspect]
     Indication: DYSLIPIDAEMIA
     Route: 048
     Dates: start: 20110210, end: 20110215
  4. NEXIUM [Concomitant]
     Indication: DUODENAL ULCER
     Route: 048
     Dates: start: 20100101
  5. ENALAPRIL MALEATE [Concomitant]
     Indication: HYPERTENSION
     Route: 048
     Dates: start: 19860101
  6. LERIDIP [Concomitant]
     Indication: HYPERTENSION
     Route: 048
     Dates: start: 20030101

REACTIONS (3)
  - EPISTAXIS [None]
  - CONVULSION [None]
  - TONGUE INJURY [None]
